FAERS Safety Report 26040254 (Version 1)
Quarter: 2025Q4

REPORT INFORMATION
  Report Type: Spontaneous
  Country: GB (occurrence: GB)
  Receive Date: 20251113
  Receipt Date: 20251113
  Transmission Date: 20260118
  Serious: Yes (Hospitalization, Other)
  Sender: RANBAXY
  Company Number: GB-SUN PHARMACEUTICAL INDUSTRIES LTD-2025R1-535795

PATIENT
  Age: 60 Year
  Sex: Male

DRUGS (3)
  1. ASCORBIC ACID [Suspect]
     Active Substance: ASCORBIC ACID
     Indication: Obesity
     Dosage: 2440 MILLIGRAM
     Route: 065
  2. CHOLECALCIFEROL [Suspect]
     Active Substance: CHOLECALCIFEROL
     Indication: Obesity
     Dosage: 13200 UNITS QD
     Route: 065
  3. ORLISTAT [Interacting]
     Active Substance: ORLISTAT
     Indication: Obesity
     Dosage: UNK
     Route: 065

REACTIONS (6)
  - Chronic kidney disease [Unknown]
  - Drug level above therapeutic [Unknown]
  - Hypercalcaemia [Recovering/Resolving]
  - Prescription drug used without a prescription [Unknown]
  - Crystal nephropathy [Unknown]
  - Drug interaction [Unknown]
